FAERS Safety Report 13931476 (Version 4)
Quarter: 2018Q1

REPORT INFORMATION
  Report Type: Spontaneous
  Country: US (occurrence: US)
  Receive Date: 20170903
  Receipt Date: 20180221
  Transmission Date: 20180508
  Serious: Yes (Death)
  Sender: FDA-Public Use
  Company Number: PHEH2017US028259

PATIENT
  Age: 83 Year
  Weight: 38.95 kg

DRUGS (8)
  1. CRESTON [Concomitant]
     Indication: HYPERLIPIDAEMIA
     Dosage: 40 MG, QD
     Route: 048
  2. SPIRONOLACTONE. [Concomitant]
     Active Substance: SPIRONOLACTONE
     Indication: LEFT VENTRICULAR FAILURE
     Dosage: UNK UNK, QD
     Route: 048
  3. RANITINE [Concomitant]
     Indication: GASTRECTOMY
     Dosage: 150 MG, QD
     Route: 048
  4. VITAMIN D [Concomitant]
     Active Substance: CHOLECALCIFEROL
     Indication: SUPPLEMENTATION THERAPY
     Dosage: 2000 MG, QD
     Route: 048
  5. ZOMETA [Suspect]
     Active Substance: ZOLEDRONIC ACID
     Indication: HYPERCALCAEMIA OF MALIGNANCY
     Dosage: 2 MG, Q8WEEKS
     Route: 042
     Dates: start: 20160309, end: 20170721
  6. MIDODRINE [Concomitant]
     Active Substance: MIDODRINE
     Indication: INCREASED APPETITE
     Dosage: 25 MG, QD
     Route: 048
  7. CITALOPRAM [Concomitant]
     Active Substance: CITALOPRAM HYDROBROMIDE
     Indication: DEPRESSION
     Dosage: 20 MG, QD
     Route: 048
  8. NADOLOL. [Concomitant]
     Active Substance: NADOLOL
     Indication: LEFT VENTRICULAR FAILURE
     Dosage: 40 MG, QD
     Route: 048

REACTIONS (2)
  - Chronic obstructive pulmonary disease [Fatal]
  - Emphysema [Fatal]

NARRATIVE: CASE EVENT DATE: 20170822
